FAERS Safety Report 7597835-3 (Version None)
Quarter: 2011Q3

REPORT INFORMATION
  Report Type: 
  Country: None (occurrence: None)
  Receive Date: 20110708
  Receipt Date: 20110705
  Transmission Date: 20111222
  Serious: Yes (Other)
  Sender: FDA-Public Use
  Company Number: US-PFIZER INC-2011147369

PATIENT
  Sex: Male
  Weight: 102 kg

DRUGS (3)
  1. LYRICA [Suspect]
     Indication: NEURALGIA
     Dosage: 75 MG, DAILY
     Route: 048
     Dates: start: 20110601
  2. OMEPRAZOLE [Suspect]
     Indication: GASTROOESOPHAGEAL REFLUX DISEASE
     Dosage: UNK
  3. PERCOCET [Concomitant]
     Indication: PAIN
     Dosage: UNK
     Route: 048

REACTIONS (3)
  - HYPERTENSION [None]
  - WEIGHT INCREASED [None]
  - MIGRAINE [None]
